FAERS Safety Report 10219657 (Version 1)
Quarter: 2014Q2

REPORT INFORMATION
  Report Type: Spontaneous
  Country: US (occurrence: US)
  Receive Date: 20140605
  Receipt Date: 20140605
  Transmission Date: 20141212
  Serious: Yes (Hospitalization, Other)
  Sender: FDA-Public Use
  Company Number: US-PFIZER INC-2014152070

PATIENT
  Age: 66 Year
  Sex: Male

DRUGS (1)
  1. NORVASC [Suspect]
     Indication: HYPERTENSION
     Dosage: UNK
     Dates: end: 2013

REACTIONS (5)
  - Loss of consciousness [Unknown]
  - Loss of consciousness [Unknown]
  - Convulsion [Unknown]
  - Dizziness [Unknown]
  - Hypotension [Unknown]
